FAERS Safety Report 10402213 (Version 1)
Quarter: 2014Q3

REPORT INFORMATION
  Report Type: Spontaneous
  Country: US (occurrence: None)
  Receive Date: 20140818
  Receipt Date: 20140818
  Transmission Date: 20150326
  Serious: Yes (Hospitalization, Other)
  Sender: FDA-Public Use
  Company Number: UNT-2014-003505

PATIENT
  Age: 47 Year
  Sex: Male

DRUGS (4)
  1. REVATIO (SILDENAFIL CITRATE) [Concomitant]
  2. LETAIRIS [Concomitant]
     Active Substance: AMBRISENTAN
  3. COUMADIN (WARFARMIN SODIUM) [Concomitant]
  4. REMODULIN [Suspect]
     Active Substance: TREPROSTINIL
     Indication: COR PULMONALE CHRONIC
     Route: 041
     Dates: start: 20080715

REACTIONS (3)
  - Vomiting [None]
  - Pancreatitis [None]
  - Nausea [None]

NARRATIVE: CASE EVENT DATE: 20140701
